FAERS Safety Report 5575410-X (Version None)
Quarter: 2007Q4

REPORT INFORMATION
  Report Type: 
  Country: None (occurrence: None)
  Receive Date: 20071227
  Receipt Date: 20071204
  Transmission Date: 20080405
  Serious: No
  Sender: FDA-Public Use
  Company Number: US-BOEHRINGER INGELHEIM PHARMACEUTICALS, INC.-2007-BP-23433BP

PATIENT
  Sex: Male
  Weight: 77 kg

DRUGS (14)
  1. FLOMAX [Suspect]
     Indication: BENIGN PROSTATIC HYPERPLASIA
     Route: 048
     Dates: start: 20061101
  2. BENTYL [Concomitant]
  3. AMBIEN [Concomitant]
  4. BUSPAR [Concomitant]
  5. TRIAMTERENE AND HYDROCHLOROTHIAZIDE [Concomitant]
  6. DICYCLOMINE [Concomitant]
  7. ZOLPIDEM [Concomitant]
  8. FLONASE [Concomitant]
  9. ASTELIN [Concomitant]
  10. SUDAFED 12 HOUR [Concomitant]
  11. PRILOSEC [Concomitant]
  12. VITAMINS [Concomitant]
     Indication: VITAMIN SUPPLEMENTATION
  13. CITRUCEL [Concomitant]
     Indication: IRRITABLE BOWEL SYNDROME
  14. POLYETHYLENE [Concomitant]
     Indication: IRRITABLE BOWEL SYNDROME

REACTIONS (2)
  - DRUG INEFFECTIVE [None]
  - URINARY INCONTINENCE [None]
